FAERS Safety Report 7882286 (Version 4)
Quarter: 2014Q1

REPORT INFORMATION
  Report Type: Spontaneous
  Country: US (occurrence: US)
  Receive Date: 20110401
  Receipt Date: 20140205
  Transmission Date: 20141002
  Serious: Yes (Death, Other)
  Sender: FDA-Public Use
  Company Number: US-PFIZER INC-2006088828

PATIENT
  Age: 44 Year
  Sex: Male

DRUGS (5)
  1. BENICAR [Suspect]
     Indication: HYPERTENSION
     Dosage: 60 TABLETS AT 40 MG EACH (OVERDOSE AMOUNT)
     Route: 048
     Dates: start: 2006
  2. NORVASC [Suspect]
     Indication: HYPERTENSION
     Dosage: 120 TABLETS AT 10 MG EACH (OVERDOSE AMOUNT)
     Route: 048
     Dates: start: 2006
  3. AMLODIPINE BESILATE [Suspect]
     Indication: HYPERTENSION
     Dosage: 90 TABLETS AT 10 MG EACH (OVERDOSE AMOUNT)
     Route: 048
     Dates: start: 2006
  4. EFFEXOR XR [Suspect]
     Dosage: UNK
     Route: 065
  5. AMITRIPTYLINE [Suspect]
     Dosage: UNK
     Route: 048

REACTIONS (5)
  - Intentional overdose [Fatal]
  - Completed suicide [Fatal]
  - Toxicity to various agents [Fatal]
  - Pulmonary oedema [Not Recovered/Not Resolved]
  - Foaming at mouth [Not Recovered/Not Resolved]
